FAERS Safety Report 5887863-8 (Version None)
Quarter: 2008Q3

REPORT INFORMATION
  Report Type: 
  Country: None (occurrence: None)
  Receive Date: 20080917
  Receipt Date: 20080917
  Transmission Date: 20090109
  Serious: Yes (Other)
  Sender: FDA-Public Use
  Company Number: None

PATIENT
  Sex: Female
  Weight: 84 kg

DRUGS (1)
  1. HYDROCHLOROTHIAZIDE [Suspect]
     Dosage: 25MG DAILY
     Dates: start: 20080830, end: 20080908

REACTIONS (2)
  - ARTHRALGIA [None]
  - BLOOD URIC ACID INCREASED [None]
